FAERS Safety Report 16467683 (Version 1)
Quarter: 2019Q2

REPORT INFORMATION
  Report Type: Spontaneous
  Country: GB (occurrence: GB)
  Receive Date: 20190624
  Receipt Date: 20190624
  Transmission Date: 20190711
  Serious: Yes (Other)
  Sender: FDA-Public Use
  Company Number: GB-TEVA-2019-GB-1067061

PATIENT
  Age: 78 Year
  Sex: Female
  Weight: 79 kg

DRUGS (13)
  1. COLECALCIFEROL [Concomitant]
     Active Substance: CHOLECALCIFEROL
     Dosage: 1 DOSAGE FORMS DAILY;
     Dates: start: 20190123
  2. FUROSEMIDE. [Concomitant]
     Active Substance: FUROSEMIDE
     Dosage: 1 DOSAGE FORMS DAILY; EACH MORNING
     Dates: start: 20190517
  3. METHOTREXATE. [Concomitant]
     Active Substance: METHOTREXATE
     Dates: start: 20190329
  4. HYDROXYCHLOROQUINE SULFATE. [Concomitant]
     Active Substance: HYDROXYCHLOROQUINE SULFATE
     Dosage: 1 DOSAGE FORMS DAILY; AS DIRECTED BY RHEUMATOLOGIST
     Dates: start: 20181123
  5. SOLIFENACIN [Concomitant]
     Active Substance: SOLIFENACIN
     Dosage: 1 DOSAGE FORMS DAILY;
     Dates: start: 20170927
  6. CLINDAMYCIN. [Concomitant]
     Active Substance: CLINDAMYCIN
     Dosage: 1 DOSAGE FORMS DAILY; APPLY AT NIGHT
     Dates: start: 20170927
  7. ACICLOVIR [Concomitant]
     Active Substance: ACYCLOVIR
     Dosage: 2 DOSAGE FORMS DAILY;
     Dates: start: 20180925
  8. NITROFURANTOIN. [Suspect]
     Active Substance: NITROFURANTOIN
     Indication: URINARY TRACT INFECTION
     Dosage: 200 MILLIGRAM DAILY;
     Dates: start: 20190517
  9. FOLIC ACID. [Concomitant]
     Active Substance: FOLIC ACID
     Dosage: 2 DOSAGE FORMS DAILY; ON DAY BEFORE METHOTREXATE
     Dates: start: 20181022
  10. CALCIUM CARBONATE. [Concomitant]
     Active Substance: CALCIUM CARBONATE
     Dosage: 2 DOSAGE FORMS DAILY;
     Dates: start: 20181123
  11. TIMOLOL. [Concomitant]
     Active Substance: TIMOLOL
     Dosage: 2 GTT DAILY;
     Dates: start: 20181123
  12. ATORVASTATIN [Concomitant]
     Active Substance: ATORVASTATIN
     Dosage: 1 DOSAGE FORMS DAILY;
     Dates: start: 20190130
  13. AMITRIPTYLINE HYDROCHLORIDE. [Concomitant]
     Active Substance: AMITRIPTYLINE HYDROCHLORIDE
     Dosage: 3 DOSAGE FORMS DAILY; AT NIGHT
     Dates: start: 20181123

REACTIONS (3)
  - Dyspnoea [Recovered/Resolved]
  - Malaise [Recovered/Resolved]
  - Hyperventilation [Recovered/Resolved]

NARRATIVE: CASE EVENT DATE: 20190520
